FAERS Safety Report 12629999 (Version 1)
Quarter: 2016Q3

REPORT INFORMATION
  Report Type: Spontaneous
  Country: US (occurrence: US)
  Receive Date: 20160808
  Receipt Date: 20160808
  Transmission Date: 20161109
  Serious: Yes (Hospitalization)
  Sender: FDA-Public Use
  Company Number: US-JNJFOC-20160801654

PATIENT
  Age: 73 Year
  Sex: Male

DRUGS (1)
  1. ZYTIGA [Suspect]
     Active Substance: ABIRATERONE ACETATE
     Indication: PROSTATE CANCER
     Dosage: NDC # 57894-150-13
     Route: 048
     Dates: start: 20130718

REACTIONS (2)
  - Gastrointestinal disorder [Unknown]
  - Sepsis [Unknown]

NARRATIVE: CASE EVENT DATE: 20160125
